FAERS Safety Report 18428828 (Version 1)
Quarter: 2020Q4

REPORT INFORMATION
  Report Type: Spontaneous
  Country: US (occurrence: US)
  Receive Date: 20201027
  Receipt Date: 20201027
  Transmission Date: 20210114
  Serious: Yes (Other)
  Sender: FDA-Public Use
  Company Number: US-ABBVIE-20K-163-3621612-00

PATIENT
  Sex: Female

DRUGS (14)
  1. PANTOPRAZOLE [Concomitant]
     Active Substance: PANTOPRAZOLE
     Indication: HYPERCHLORHYDRIA
  2. RIVASTIGMINE. [Concomitant]
     Active Substance: RIVASTIGMINE
     Indication: COGNITIVE DISORDER
  3. VITAMIN B12 [Concomitant]
     Active Substance: CYANOCOBALAMIN
     Indication: VITAMIN SUPPLEMENTATION
  4. MEGACE [Concomitant]
     Active Substance: MEGESTROL ACETATE
     Indication: APPETITE DISORDER
  5. ASPIRIN. [Concomitant]
     Active Substance: ASPIRIN
     Indication: ANTICOAGULANT THERAPY
  6. VITAMIN D3 [Concomitant]
     Active Substance: CHOLECALCIFEROL
     Indication: BLOOD CALCIUM ABNORMAL
  7. ATORVASTATIN [Concomitant]
     Active Substance: ATORVASTATIN
     Indication: CARDIOVASCULAR DISORDER
  8. SEROQUEL [Concomitant]
     Active Substance: QUETIAPINE FUMARATE
     Indication: SLEEP DISORDER
  9. DUOPA [Suspect]
     Active Substance: CARBIDOPA\LEVODOPA
  10. ATENOLOL. [Concomitant]
     Active Substance: ATENOLOL
     Indication: HYPERTENSION
  11. NUPLAZID [Concomitant]
     Active Substance: PIMAVANSERIN TARTRATE
     Indication: PARKINSON^S DISEASE PSYCHOSIS
  12. MIRTAZAPINE. [Concomitant]
     Active Substance: MIRTAZAPINE
     Indication: APPETITE DISORDER
  13. ATIVAN [Concomitant]
     Active Substance: LORAZEPAM
     Indication: ANXIETY
  14. DUOPA [Suspect]
     Active Substance: CARBIDOPA\LEVODOPA
     Indication: PARKINSON^S DISEASE
     Route: 050
     Dates: start: 202006

REACTIONS (2)
  - Dementia [Not Recovered/Not Resolved]
  - Device alarm issue [Recovered/Resolved]

NARRATIVE: CASE EVENT DATE: 2020
